FAERS Safety Report 10902109 (Version 2)
Quarter: 2015Q1

REPORT INFORMATION
  Report Type: Spontaneous
  Country: CH (occurrence: CH)
  Receive Date: 20150310
  Receipt Date: 20150319
  Transmission Date: 20150721
  Serious: Yes (Hospitalization, Other)
  Sender: FDA-Public Use
  Company Number: CH-PFIZER INC-2015085168

PATIENT

DRUGS (6)
  1. SEQUASE [Suspect]
     Active Substance: QUETIAPINE FUMARATE
     Dosage: 17.5 MG, DAILY
     Route: 064
  2. CANSARTAN [Suspect]
     Active Substance: CANDESARTAN CILEXETIL
     Dosage: 8 MG, DAILY
     Route: 064
     Dates: start: 2013, end: 2014
  3. CYMBALTA [Suspect]
     Active Substance: DULOXETINE HYDROCHLORIDE
     Dosage: 15 MG, ALTERNATE DAY
     Route: 064
     Dates: start: 2013
  4. ADALAT [Suspect]
     Active Substance: NIFEDIPINE
     Dosage: 20 MG, 2X/DAY
     Route: 064
     Dates: start: 2014
  5. ATENOLOL. [Suspect]
     Active Substance: ATENOLOL
     Dosage: 25 MG, 1X/DAY
     Route: 064
     Dates: start: 2013, end: 2014
  6. SEQUASE [Suspect]
     Active Substance: QUETIAPINE FUMARATE
     Dosage: 25 MG, DAILY
     Route: 064
     Dates: start: 2013

REACTIONS (2)
  - Premature baby [Recovered/Resolved]
  - Exposure during pregnancy [Unknown]

NARRATIVE: CASE EVENT DATE: 20140905
